FAERS Safety Report 19474524 (Version 2)
Quarter: 2021Q4

REPORT INFORMATION
  Report Type: Spontaneous
  Country: FR (occurrence: FR)
  Receive Date: 20210629
  Receipt Date: 20211129
  Transmission Date: 20220303
  Serious: Yes (Other)
  Sender: FDA-Public Use
  Company Number: FR-SA-2021SA209719

PATIENT
  Age: 1 Month

DRUGS (1)
  1. CLOBAZAM [Suspect]
     Active Substance: CLOBAZAM
     Indication: Product used for unknown indication
     Dosage: UNK
     Route: 064

REACTIONS (4)
  - Foetal hypokinesia [Unknown]
  - Foetal exposure during pregnancy [Unknown]
  - Head circumference abnormal [Unknown]
  - Overdose [Unknown]
